FAERS Safety Report 14577972 (Version 1)
Quarter: 2018Q1

REPORT INFORMATION
  Report Type: Spontaneous
  Country: DE (occurrence: DE)
  Receive Date: 20180227
  Receipt Date: 20180227
  Transmission Date: 20180509
  Serious: Yes (Other)
  Sender: FDA-Public Use
  Company Number: DE-GLAXOSMITHKLINE-DE2018028777

PATIENT
  Sex: Female

DRUGS (3)
  1. XOLAIR [Suspect]
     Active Substance: OMALIZUMAB
     Indication: PRODUCT USED FOR UNKNOWN INDICATION
     Dosage: 150 MG, 2 DF EVERY FOUR WEEKS
     Route: 065
  2. NUCALA [Suspect]
     Active Substance: MEPOLIZUMAB
     Indication: PRODUCT USED FOR UNKNOWN INDICATION
     Dosage: UNK
     Route: 065
  3. XOLAIR [Suspect]
     Active Substance: OMALIZUMAB
     Dosage: 150 MG, 2 DF EVERY FOUR WEEKS
     Route: 065

REACTIONS (10)
  - Injection site erythema [Unknown]
  - Injection site pruritus [Unknown]
  - Hypertensive crisis [Not Recovered/Not Resolved]
  - Injection site pain [Unknown]
  - Spinal fracture [Unknown]
  - Drug ineffective [Unknown]
  - Injection site bruising [Unknown]
  - Back pain [Unknown]
  - Malaise [Unknown]
  - Injection site swelling [Unknown]

NARRATIVE: CASE EVENT DATE: 2017
